FAERS Safety Report 5818940-5 (Version None)
Quarter: 2008Q3

REPORT INFORMATION
  Report Type: 
  Country: None (occurrence: None)
  Receive Date: 20080717
  Receipt Date: 20080709
  Transmission Date: 20090109
  Serious: Yes (Death)
  Sender: FDA-Public Use
  Company Number: 2008AL006433

PATIENT
  Age: 34 Year
  Sex: Female

DRUGS (6)
  1. CITALOPRAM HYDROBROMIDE [Suspect]
  2. LEVOTHYROXINE SODIUM [Concomitant]
  3. ZAPONEX [Concomitant]
  4. LANSOPRAZOLE [Concomitant]
  5. THEOPHYLLINE [Concomitant]
  6. COMBIVENT [Concomitant]

REACTIONS (3)
  - DEPRESSED LEVEL OF CONSCIOUSNESS [None]
  - DRUG TOXICITY [None]
  - RESPIRATORY DEPRESSION [None]
